FAERS Safety Report 11746843 (Version 1)
Quarter: 2015Q4

REPORT INFORMATION
  Report Type: Spontaneous
  Country: US (occurrence: US)
  Receive Date: 20151117
  Receipt Date: 20151117
  Transmission Date: 20160304
  Serious: Yes (Other)
  Sender: FDA-Public Use
  Company Number: US-PFIZER INC-2015377758

PATIENT
  Age: 22 Year
  Sex: Male

DRUGS (2)
  1. CISPLATIN. [Suspect]
     Active Substance: CISPLATIN
     Indication: METASTATIC NEOPLASM
     Dosage: 120 MG/M2, CYCLIC INTRAVENOUS INFUSION OVER 4H
     Route: 042
  2. DOXORUBICIN HCL [Suspect]
     Active Substance: DOXORUBICIN HYDROCHLORIDE
     Indication: METASTATIC NEOPLASM
     Dosage: 90 MG/M2 CONTINUOUS INFUSON OVER 72 HOURS

REACTIONS (4)
  - Ototoxicity [Unknown]
  - Febrile neutropenia [Unknown]
  - Tinnitus [Unknown]
  - Mucosal inflammation [Unknown]
